FAERS Safety Report 5921738-0 (Version None)
Quarter: 2008Q4

REPORT INFORMATION
  Report Type: 
  Country: None (occurrence: None)
  Receive Date: 20081016
  Receipt Date: 20081016
  Transmission Date: 20090506
  Serious: Yes (Other)
  Sender: FDA-Public Use
  Company Number: None

PATIENT
  Age: 22 Year
  Sex: Female
  Weight: 72.5755 kg

DRUGS (4)
  1. ZICAM [Suspect]
     Indication: NASOPHARYNGITIS
     Dates: start: 20081007, end: 20081008
  2. ZICAM [Suspect]
     Indication: PROPHYLAXIS
     Dates: start: 20081007, end: 20081008
  3. ZICAM [Suspect]
     Indication: NASOPHARYNGITIS
     Dates: start: 20081013, end: 20081014
  4. ZICAM [Suspect]
     Indication: PROPHYLAXIS
     Dates: start: 20081013, end: 20081014

REACTIONS (3)
  - DISCOMFORT [None]
  - IMPAIRED WORK ABILITY [None]
  - MIGRAINE [None]
